FAERS Safety Report 5398651-3 (Version None)
Quarter: 2007Q3

REPORT INFORMATION
  Report Type: 
  Country: None (occurrence: None)
  Receive Date: 20070726
  Receipt Date: 20060913
  Transmission Date: 20080115
  Serious: No
  Sender: FDA-Public Use
  Company Number: US-AMGEN-US193611

PATIENT
  Sex: Female

DRUGS (4)
  1. NEUPOGEN [Suspect]
     Indication: CHEMOTHERAPY
     Route: 065
     Dates: start: 20060601
  2. EPOGEN [Suspect]
     Indication: ANAEMIA OF MALIGNANT DISEASE
     Route: 065
     Dates: start: 20060601
  3. ETOPOSIDE [Concomitant]
     Route: 065
  4. PREDNISONE TAB [Concomitant]
     Route: 065

REACTIONS (3)
  - BONE PAIN [None]
  - DYSPNOEA [None]
  - HYPERSENSITIVITY [None]
